FAERS Safety Report 12692934 (Version 1)
Quarter: 2016Q3

REPORT INFORMATION
  Report Type: Spontaneous
  Country: GB (occurrence: GB)
  Receive Date: 20160829
  Receipt Date: 20160829
  Transmission Date: 20161109
  Serious: Yes (Hospitalization)
  Sender: FDA-Public Use
  Company Number: GB-SA-2016SA150111

PATIENT
  Age: 80 Year
  Sex: Female

DRUGS (1)
  1. SEVELAMER SALT NOT SPECIFIED [Suspect]
     Active Substance: SEVELAMER
     Route: 065

REACTIONS (12)
  - Secretion discharge [Unknown]
  - Biopsy mucosa abnormal [Unknown]
  - Pneumothorax [Unknown]
  - Breath sounds abnormal [Unknown]
  - Purulent discharge [Unknown]
  - Foreign body aspiration [Unknown]
  - Percussion test abnormal [Unknown]
  - Bronchoscopy abnormal [Unknown]
  - Rales [Unknown]
  - Tracheal deviation [Unknown]
  - Medication residue present [Unknown]
  - Lower respiratory tract inflammation [Unknown]
